FAERS Safety Report 9943346 (Version 2)
Quarter: 2014Q1

REPORT INFORMATION
  Report Type: Spontaneous
  Country: NL (occurrence: NL)
  Receive Date: 20140303
  Receipt Date: 20140313
  Transmission Date: 20141002
  Serious: Yes (Other)
  Sender: FDA-Public Use
  Company Number: NL-WATSON-2014-03245

PATIENT
  Age: 40 Year
  Sex: Female
  Weight: 76 kg

DRUGS (2)
  1. SOTALOL (UNKNOWN) [Suspect]
     Indication: FOETAL CARDIAC DISORDER
     Dosage: 1 DF, TID - 3 KEER PER DAG 1 STUK(S)
     Route: 048
     Dates: start: 201011, end: 20110119
  2. DIGOXIN (UNKNOWN) [Interacting]
     Indication: FOETAL CARDIAC DISORDER
     Dosage: 1 DF, DAILY - 1 KEER PER DAG 1 STUK(S)
     Route: 048
     Dates: start: 20101111, end: 20110119

REACTIONS (8)
  - Syncope [Recovering/Resolving]
  - Abnormal behaviour [Recovering/Resolving]
  - Diarrhoea [Recovering/Resolving]
  - Hot flush [Recovering/Resolving]
  - Asthenia [Recovering/Resolving]
  - Galactorrhoea [Recovering/Resolving]
  - Mood altered [Recovering/Resolving]
  - Drug interaction [Recovering/Resolving]
